FAERS Safety Report 9083791 (Version 2)
Quarter: 2013Q2

REPORT INFORMATION
  Report Type: Spontaneous
  Country: US (occurrence: US)
  Receive Date: 20130130
  Receipt Date: 20130423
  Transmission Date: 20140414
  Serious: No
  Sender: FDA-Public Use
  Company Number: US-009507513-1301USA013143

PATIENT
  Age: 47 Year
  Sex: Female

DRUGS (3)
  1. JANUMET [Suspect]
     Indication: DIABETES MELLITUS
     Dosage: 50/1000 MG; TWICE DAILY
     Route: 048
     Dates: start: 201212
  2. AVONEX [Concomitant]
  3. GLIPIZIDE [Concomitant]

REACTIONS (1)
  - Alopecia [Not Recovered/Not Resolved]
